FAERS Safety Report 9053720 (Version 2)
Quarter: 2013Q2

REPORT INFORMATION
  Report Type: Report from Study
  Country: CA (occurrence: CA)
  Receive Date: 20130208
  Receipt Date: 20130422
  Transmission Date: 20140414
  Serious: Yes (Other)
  Sender: FDA-Public Use
  Company Number: CA-BAYER-2013-013484

PATIENT
  Age: 25 Year
  Sex: Female

DRUGS (3)
  1. MIRENA [Suspect]
     Indication: CONTRACEPTION
     Dosage: 20 MCG/24HR, CONT
     Route: 015
     Dates: start: 20130111, end: 20130125
  2. CEFOXITIN [Concomitant]
     Indication: PELVIC INFLAMMATORY DISEASE
     Dosage: 2 G, UNK
     Route: 030
  3. DOXYCYCLIN [Concomitant]
     Indication: PELVIC INFLAMMATORY DISEASE
     Dosage: 100 MG, BID
     Route: 048

REACTIONS (2)
  - Chlamydia test positive [Recovered/Resolved]
  - Device expulsion [None]
